FAERS Safety Report 18438405 (Version 4)
Quarter: 2020Q4

REPORT INFORMATION
  Report Type: Report from Study
  Country: ES (occurrence: ES)
  Receive Date: 20201029
  Receipt Date: 20201124
  Transmission Date: 20210114
  Serious: Yes (Hospitalization, Disabling)
  Sender: FDA-Public Use
  Company Number: ES-ROCHE-2697428

PATIENT
  Age: 62 Year
  Sex: Female

DRUGS (28)
  1. FUROSEMIDE. [Concomitant]
     Active Substance: FUROSEMIDE
     Indication: LYMPHOEDEMA
     Route: 048
     Dates: start: 20200708
  2. ONDANSETRON [Concomitant]
     Active Substance: ONDANSETRON
     Route: 042
     Dates: start: 20200825, end: 20200825
  3. FOLIC ACID. [Concomitant]
     Active Substance: FOLIC ACID
     Route: 048
     Dates: start: 20200831
  4. DEXAMETHASONE. [Concomitant]
     Active Substance: DEXAMETHASONE
     Route: 042
     Dates: start: 20200803, end: 20200803
  5. ONDANSETRON [Concomitant]
     Active Substance: ONDANSETRON
     Dosage: THIRD DAY OF CHEMOTHERAPY PREVIOUS TO TRETMENT
     Route: 042
     Dates: start: 20200715
  6. ALPRAZOLAM. [Concomitant]
     Active Substance: ALPRAZOLAM
     Indication: DEPRESSION
     Route: 048
     Dates: start: 20180320
  7. APREPITANT. [Concomitant]
     Active Substance: APREPITANT
     Dosage: SECOND DAY OF CHEMOTHERAPY PREVIOUS TO TRETMENT
     Route: 048
     Dates: start: 20200714
  8. DEXAMETHASONE. [Concomitant]
     Active Substance: DEXAMETHASONE
     Dosage: THIRD DAY OF CHEMOTHERAPY PREVIOUS TO TRETMENT
     Route: 042
     Dates: start: 20200715
  9. ONDANSETRON [Concomitant]
     Active Substance: ONDANSETRON
     Dosage: SECOND DAY OF CHEMOTHERAPY PREVIOUS TO TRETMENT
     Route: 042
     Dates: start: 20200714
  10. PROTEIN [Concomitant]
     Active Substance: PROTEIN
     Route: 048
     Dates: start: 20201026
  11. CARBOPLATIN. [Suspect]
     Active Substance: CARBOPLATIN
     Indication: SMALL CELL LUNG CANCER EXTENSIVE STAGE
     Dosage: LAST DOSE ADMINISTERED BEFORE ADVERSE EVENT ON  23/SEP/2020
     Route: 042
     Dates: start: 20200713
  12. PARACETAMOL [Concomitant]
     Active Substance: ACETAMINOPHEN
     Route: 048
     Dates: start: 20200710
  13. APREPITANT. [Concomitant]
     Active Substance: APREPITANT
     Route: 048
     Dates: start: 20200713
  14. ATEZOLIZUMAB. [Suspect]
     Active Substance: ATEZOLIZUMAB
     Indication: SMALL CELL LUNG CANCER EXTENSIVE STAGE
     Dosage: LAST DOSE ADMINISTERED BEFORE ADVERSE EVENT ON  23/SEP/2020
     Route: 042
     Dates: start: 20200713
  15. CITALOPRAM [Concomitant]
     Active Substance: CITALOPRAM HYDROBROMIDE
     Indication: DEPRESSION
     Route: 048
     Dates: start: 20180320
  16. DEXAMETHASONE. [Concomitant]
     Active Substance: DEXAMETHASONE
     Route: 042
     Dates: start: 20200713, end: 20200713
  17. DEXAMETHASONE. [Concomitant]
     Active Substance: DEXAMETHASONE
     Dosage: SECOND DAY OF CHEMOTHERAPY PREVIOUS TO TRETMENT
     Route: 042
     Dates: start: 20200714
  18. RANITIDINE. [Concomitant]
     Active Substance: RANITIDINE
     Dosage: SECOND DAY OF CHEMOTHERAPY PREVIOUS TO TRETMENT
     Route: 042
     Dates: start: 20200714
  19. RANITIDINE. [Concomitant]
     Active Substance: RANITIDINE
     Dosage: THIRD DAY OF CHEMOTHERAPY PREVIOUS TO TRETMENT
     Route: 042
     Dates: start: 20200715
  20. ETOPOSIDE. [Suspect]
     Active Substance: ETOPOSIDE
     Indication: SMALL CELL LUNG CANCER EXTENSIVE STAGE
     Dosage: LAST DOSE ADMINISTERED BEFORE ADVERSE EVENT ON  25/SEP/2020
     Route: 042
     Dates: start: 20200713
  21. APREPITANT. [Concomitant]
     Active Substance: APREPITANT
     Dosage: THIRD DAY OF CHEMOTHERAPY PREVIOUS TO TRETMENT
     Route: 048
     Dates: start: 20200715
  22. RANITIDINE. [Concomitant]
     Active Substance: RANITIDINE
     Dosage: FIRST DAY OF CHEMOTHERAPY PREVIOUS TO TRETEMENT
     Route: 042
     Dates: start: 20200713
  23. ENOXAPARIN [Concomitant]
     Active Substance: ENOXAPARIN
     Route: 048
     Dates: start: 20200915
  24. OMEPRAZOLE. [Concomitant]
     Active Substance: OMEPRAZOLE
     Route: 048
     Dates: start: 20200708
  25. BEMIPARIN SODIUM [Concomitant]
     Active Substance: BEMIPARIN SODIUM
     Indication: SUPERIOR VENA CAVA SYNDROME
     Route: 058
     Dates: start: 20200709
  26. ONDANSETRON [Concomitant]
     Active Substance: ONDANSETRON
     Route: 042
     Dates: start: 20200713, end: 20200713
  27. ONDANSETRON [Concomitant]
     Active Substance: ONDANSETRON
     Route: 042
     Dates: start: 20200803, end: 20200803
  28. DEXAMETHASONE. [Concomitant]
     Active Substance: DEXAMETHASONE
     Route: 042
     Dates: start: 20200825, end: 20200825

REACTIONS (1)
  - Paraneoplastic myelopathy [Not Recovered/Not Resolved]

NARRATIVE: CASE EVENT DATE: 20201014
